FAERS Safety Report 23327359 (Version 5)
Quarter: 2025Q4

REPORT INFORMATION
  Report Type: Spontaneous
  Country: US (occurrence: US)
  Receive Date: 20231221
  Receipt Date: 20251030
  Transmission Date: 20260119
  Serious: No
  Sender: PFIZER
  Company Number: US-PFIZER INC-202300444249

PATIENT
  Age: 70 Year
  Sex: Female
  Weight: 65.488 kg

DRUGS (1)
  1. IBRANCE [Suspect]
     Active Substance: PALBOCICLIB
     Indication: Breast cancer female
     Dosage: 125 MG, CYCLIC (1 TABLET DAILY. ADMINISTER ON DAYS 1 THROUGH 21 OF A 28-DAY)
     Route: 048

REACTIONS (3)
  - Diarrhoea [Unknown]
  - Onychoclasis [Unknown]
  - Nail disorder [Unknown]
